FAERS Safety Report 8011343-7 (Version None)
Quarter: 2011Q4

REPORT INFORMATION
  Report Type: 
  Country: None (occurrence: None)
  Receive Date: 20111228
  Receipt Date: 20111221
  Transmission Date: 20120403
  Serious: No
  Sender: FDA-Public Use
  Company Number: US-B.I. PHARMACEUTICALS,INC./RIDGEFIELD-2011-BP-28610BP

PATIENT
  Sex: Female

DRUGS (5)
  1. DILTIAZEM HCL [Concomitant]
     Indication: ATRIAL FIBRILLATION
  2. COUMADIN [Concomitant]
     Indication: ATRIAL FIBRILLATION
  3. PRADAXA [Suspect]
     Indication: ATRIAL FIBRILLATION
     Dosage: 300 MG
     Route: 048
  4. DIGOXIN [Concomitant]
     Indication: ATRIAL FIBRILLATION
  5. MULTI-VITAMINS [Concomitant]
     Indication: SUPPLEMENTATION THERAPY

REACTIONS (3)
  - LIVER FUNCTION TEST ABNORMAL [None]
  - RENAL IMPAIRMENT [None]
  - RECTAL HAEMORRHAGE [None]
